FAERS Safety Report 15590078 (Version 4)
Quarter: 2019Q1

REPORT INFORMATION
  Report Type: Spontaneous
  Country: US (occurrence: US)
  Receive Date: 20181106
  Receipt Date: 20190122
  Transmission Date: 20190417
  Serious: Yes (Hospitalization, Other)
  Sender: FDA-Public Use
  Company Number: US-GLAXOSMITHKLINE-US2018GSK201003

PATIENT
  Age: 49 Year
  Sex: Male
  Weight: 98.87 kg

DRUGS (11)
  1. MMF [Concomitant]
     Active Substance: MYCOPHENOLATE MOFETIL
  2. BENLYSTA [Suspect]
     Active Substance: BELIMUMAB
     Indication: SYSTEMIC LUPUS ERYTHEMATOSUS
     Dosage: UNK
     Route: 042
     Dates: start: 2016, end: 20180822
  3. AMLODIPINE [Concomitant]
     Active Substance: AMLODIPINE BESYLATE
     Dosage: 5 MG, BID
     Route: 048
  4. CELLCEPT [Concomitant]
     Active Substance: MYCOPHENOLATE MOFETIL\MYCOPHENOLATE MOFETIL HYDROCHLORIDE
  5. HYDROXYCHLOROQUINE [Concomitant]
     Active Substance: HYDROXYCHLOROQUINE
  6. LABETALOL [Concomitant]
     Active Substance: LABETALOL\LABETALOL HYDROCHLORIDE
     Dosage: 300 MG, TID
     Route: 048
  7. KLONOPIN [Concomitant]
     Active Substance: CLONAZEPAM
  8. LISINOPRIL. [Concomitant]
     Active Substance: LISINOPRIL
     Dosage: UNK
  9. COLCHICINE. [Concomitant]
     Active Substance: COLCHICINE
  10. ALLOPURINOL. [Concomitant]
     Active Substance: ALLOPURINOL
     Dosage: 200 MG, UNK
     Route: 048
  11. PLAQUENIL SULFATE [Concomitant]
     Active Substance: HYDROXYCHLOROQUINE SULFATE
     Dosage: 200 MG, QD
     Route: 048

REACTIONS (22)
  - Bone disorder [Unknown]
  - Chest pain [Unknown]
  - Oedema peripheral [Unknown]
  - Fatigue [Unknown]
  - Upper respiratory tract infection [Unknown]
  - Cough [Unknown]
  - Wheezing [Unknown]
  - Feeling jittery [Unknown]
  - Plasma cell myeloma [Unknown]
  - Pain in extremity [Unknown]
  - Ligament sprain [Unknown]
  - Systemic lupus erythematosus [Unknown]
  - Skin lesion [Unknown]
  - Joint swelling [Unknown]
  - Arthralgia [Unknown]
  - Osteolysis [Unknown]
  - Monoclonal gammopathy [Unknown]
  - Fall [Unknown]
  - Gait disturbance [Unknown]
  - Productive cough [Unknown]
  - Dyspnoea [Unknown]
  - Bone lesion [Unknown]

NARRATIVE: CASE EVENT DATE: 2016
